FAERS Safety Report 26217097 (Version 1)
Quarter: 2025Q4

REPORT INFORMATION
  Report Type: Spontaneous
  Country: US (occurrence: US)
  Receive Date: 20251231
  Receipt Date: 20251231
  Transmission Date: 20260118
  Serious: No
  Sender: Kenvue
  Company Number: US-KENVUE-20251202990

PATIENT

DRUGS (1)
  1. ZYRTEC [Suspect]
     Active Substance: CETIRIZINE HYDROCHLORIDE
     Indication: Hypersensitivity
     Dosage: TOOK IT DAILY FOR A LONG PERIOD OF TIME, AND THEN STOPPED USING IT, AND NO LONGER TAKE THE PRODUCT
     Route: 065

REACTIONS (3)
  - Fatigue [Unknown]
  - Withdrawal syndrome [Unknown]
  - Pruritus [Unknown]
